FAERS Safety Report 4477369-5 (Version None)
Quarter: 2004Q4

REPORT INFORMATION
  Report Type: 
  Country: None (occurrence: None)
  Receive Date: 20041013
  Receipt Date: 20040929
  Transmission Date: 20050328
  Serious: Yes (Disabling)
  Sender: FDA-Public Use
  Company Number: 2004AP03245

PATIENT
  Age: 69 Year
  Sex: Female

DRUGS (10)
  1. ANAPEINE [Suspect]
     Indication: EPIDURAL ANAESTHESIA
     Dosage: 52.5 MG DAILY ED
     Route: 008
     Dates: start: 20040601, end: 20040601
  2. ANAPEINE [Suspect]
     Indication: EPIDURAL ANAESTHESIA
     Dosage: POST-OPERATIVELY
     Dates: start: 20040601, end: 20040605
  3. MARCAINE [Suspect]
     Indication: PAIN
     Dosage: 13 MG DAILY IT
     Route: 037
     Dates: start: 20040601, end: 20040601
  4. MARCAINE [Suspect]
     Indication: SPINAL ANAESTHESIA
     Dosage: 13 MG DAILY IT
     Route: 037
     Dates: start: 20040601, end: 20040601
  5. MARCAINE [Concomitant]
  6. DIPRIVAN [Concomitant]
  7. KETAMINE HCL [Concomitant]
  8. PHYSIO 70 [Concomitant]
  9. SALINHES [Concomitant]
  10. VOLTAREN [Concomitant]

REACTIONS (8)
  - ASTHENIA [None]
  - FEELING COLD [None]
  - HYPOAESTHESIA [None]
  - MOVEMENT DISORDER [None]
  - POST PROCEDURAL PAIN [None]
  - PYREXIA [None]
  - SENSORY DISTURBANCE [None]
  - WOUND COMPLICATION [None]
